FAERS Safety Report 11417446 (Version 1)
Quarter: 2015Q3

REPORT INFORMATION
  Report Type: Spontaneous
  Country: CN (occurrence: CN)
  Receive Date: 20150825
  Receipt Date: 20150825
  Transmission Date: 20151125
  Serious: Yes (Other)
  Sender: FDA-Public Use
  Company Number: CN-009507513-1508CHN003817

PATIENT
  Age: 26 Year
  Sex: Female

DRUGS (1)
  1. ELOSON [Suspect]
     Active Substance: MOMETASONE
     Indication: ECZEMA
     Dosage: 1 G, QD, EXTERNAL ROUTE OF ADMINISTRATION
     Dates: start: 20150303, end: 20150303

REACTIONS (1)
  - Hypersensitivity [Recovering/Resolving]

NARRATIVE: CASE EVENT DATE: 20150303
